FAERS Safety Report 14701047 (Version 1)
Quarter: 2018Q1

REPORT INFORMATION
  Report Type: Report from Study
  Country: US (occurrence: US)
  Receive Date: 20180330
  Receipt Date: 20180330
  Transmission Date: 20180509
  Serious: Yes (Other)
  Sender: FDA-Public Use
  Company Number: US-UCBSA-2018013725

PATIENT
  Age: 61 Year
  Sex: Male

DRUGS (1)
  1. ROTIGOTINE [Suspect]
     Active Substance: ROTIGOTINE
     Indication: RESTLESS LEGS SYNDROME
     Dosage: 6 MG, ONCE DAILY (QD)
     Dates: start: 201612

REACTIONS (2)
  - Intentional overdose [Unknown]
  - Arthralgia [Unknown]

NARRATIVE: CASE EVENT DATE: 201612
